FAERS Safety Report 18680839 (Version 6)
Quarter: 2021Q3

REPORT INFORMATION
  Report Type: Report from Study
  Country: US (occurrence: US)
  Receive Date: 20201230
  Receipt Date: 20210901
  Transmission Date: 20211014
  Serious: Yes (Hospitalization)
  Sender: FDA-Public Use
  Company Number: US-ROCHE-2735788

PATIENT
  Age: 59 Year
  Sex: Male
  Weight: 94.4 kg

DRUGS (110)
  1. MOSUNETUZUMAB. [Suspect]
     Active Substance: MOSUNETUZUMAB
     Indication: B-CELL LYMPHOMA
     Dosage: ON 02/NOV/2020, THE PATIENT RECEIVED MOST RECENT DOSE 30 MG OF PRIOR TO AE.?ON 14/DEC/2020, PATIENT
     Route: 042
     Dates: start: 20201102
  2. PREDNISONE. [Suspect]
     Active Substance: PREDNISONE
     Dosage: DATE OF MOST RECENT DOSE OF PREDNISONE PRIOR TO SAE ONSET: 14/DEC/2020
     Route: 048
     Dates: start: 20201123
  3. OMNIPAQUE [Concomitant]
     Active Substance: IOHEXOL
     Route: 065
     Dates: start: 20201023, end: 20201023
  4. SODIUM CHLORIDE. [Concomitant]
     Active Substance: SODIUM CHLORIDE
     Route: 042
     Dates: start: 20201102, end: 20201102
  5. SODIUM CHLORIDE. [Concomitant]
     Active Substance: SODIUM CHLORIDE
     Route: 048
     Dates: start: 20201123, end: 20201123
  6. SODIUM CHLORIDE. [Concomitant]
     Active Substance: SODIUM CHLORIDE
     Route: 042
     Dates: start: 20201221, end: 20201221
  7. EMEND [Concomitant]
     Active Substance: APREPITANT
     Route: 042
     Dates: start: 20201102, end: 20201102
  8. PACKED RED BLOOD CELLS [Concomitant]
     Active Substance: HUMAN RED BLOOD CELL
     Route: 042
     Dates: start: 20201116
  9. MAGNESIUM SULFATE. [Concomitant]
     Active Substance: MAGNESIUM SULFATE
     Route: 042
     Dates: start: 20210113, end: 20210113
  10. CYCLOPHOSPHAMIDE. [Suspect]
     Active Substance: CYCLOPHOSPHAMIDE
     Dosage: DATE OF MOST RECENT DOSE OF CYCLOPHOSPHAMIDE OF 1605 MG PRIOR TO SAE ONSET: 14/DEC/2020
     Route: 042
     Dates: start: 20201123
  11. SUBLIMAZE [Concomitant]
     Active Substance: FENTANYL CITRATE
     Route: 058
     Dates: start: 20201028, end: 20201028
  12. SODIUM CHLORIDE. [Concomitant]
     Active Substance: SODIUM CHLORIDE
     Route: 042
     Dates: start: 20201221, end: 20201221
  13. BENADRYL [Concomitant]
     Active Substance: DIPHENHYDRAMINE HYDROCHLORIDE
     Route: 048
     Dates: start: 20201123, end: 20201123
  14. ZYLOPRIM [Concomitant]
     Active Substance: ALLOPURINOL
     Route: 048
     Dates: start: 20201102, end: 20201102
  15. TYLENOL [Concomitant]
     Active Substance: ACETAMINOPHEN
     Route: 048
     Dates: start: 20201214, end: 20201214
  16. PEGFILGRASTIM [Concomitant]
     Active Substance: PEGFILGRASTIM
     Route: 058
     Dates: start: 20201123, end: 20201123
  17. PALONOSETRON. [Concomitant]
     Active Substance: PALONOSETRON HYDROCHLORIDE
     Route: 042
     Dates: start: 20201123, end: 20201123
  18. HEPARIN [Concomitant]
     Active Substance: HEPARIN SODIUM
     Route: 042
     Dates: start: 20201127, end: 20201127
  19. HEPARIN [Concomitant]
     Active Substance: HEPARIN SODIUM
     Route: 042
     Dates: start: 20201216, end: 20201216
  20. HEPARIN [Concomitant]
     Active Substance: HEPARIN SODIUM
     Route: 042
     Dates: start: 20201231, end: 20201231
  21. MAXIPIME [Concomitant]
     Active Substance: CEFEPIME HYDROCHLORIDE
     Route: 042
     Dates: start: 20201221, end: 20201221
  22. MAGNESIUM SULFATE. [Concomitant]
     Active Substance: MAGNESIUM SULFATE
     Route: 042
     Dates: start: 20201228, end: 20201228
  23. MIRTAZAPINE. [Concomitant]
     Active Substance: MIRTAZAPINE
     Route: 048
     Dates: start: 20210118, end: 20210118
  24. HEPARIN SODIUM, PORCINE [Concomitant]
     Active Substance: HEPARIN SODIUM
     Route: 042
     Dates: start: 20201028, end: 20201028
  25. SODIUM CHLORIDE. [Concomitant]
     Active Substance: SODIUM CHLORIDE
     Route: 042
     Dates: start: 20201103, end: 20201103
  26. SODIUM CHLORIDE. [Concomitant]
     Active Substance: SODIUM CHLORIDE
     Route: 042
     Dates: start: 20201123, end: 20201123
  27. SODIUM CHLORIDE. [Concomitant]
     Active Substance: SODIUM CHLORIDE
     Route: 042
     Dates: start: 20201127, end: 20201127
  28. SODIUM CHLORIDE. [Concomitant]
     Active Substance: SODIUM CHLORIDE
     Route: 042
     Dates: start: 20201214, end: 20201214
  29. SODIUM CHLORIDE. [Concomitant]
     Active Substance: SODIUM CHLORIDE
     Route: 042
     Dates: start: 20201215, end: 20201215
  30. SODIUM CHLORIDE. [Concomitant]
     Active Substance: SODIUM CHLORIDE
     Route: 042
     Dates: start: 20201224, end: 20201224
  31. NEULASTA [Concomitant]
     Active Substance: PEGFILGRASTIM
     Route: 058
     Dates: start: 20201102, end: 20201102
  32. TYLENOL [Concomitant]
     Active Substance: ACETAMINOPHEN
     Route: 048
     Dates: start: 20210109, end: 20210109
  33. IMODIUM [Concomitant]
     Active Substance: LOPERAMIDE HYDROCHLORIDE
     Route: 048
     Dates: start: 20201222, end: 20201222
  34. PALONOSETRON. [Concomitant]
     Active Substance: PALONOSETRON HYDROCHLORIDE
     Route: 042
     Dates: start: 20201214, end: 20201214
  35. HEPARIN [Concomitant]
     Active Substance: HEPARIN SODIUM
     Route: 042
     Dates: start: 20201130, end: 20201130
  36. FUROSEMIDE. [Concomitant]
     Active Substance: FUROSEMIDE
     Route: 042
     Dates: start: 20210111, end: 20210111
  37. POTASSIUM CHLORIDE. [Concomitant]
     Active Substance: POTASSIUM CHLORIDE
     Dosage: 40 OTHER
     Route: 048
     Dates: start: 20201222, end: 20201222
  38. POTASSIUM CHLORIDE. [Concomitant]
     Active Substance: POTASSIUM CHLORIDE
     Dosage: 80 OTHER
     Route: 048
     Dates: start: 20201228, end: 20201228
  39. ZOFRAN [Concomitant]
     Active Substance: ONDANSETRON HYDROCHLORIDE
     Route: 042
     Dates: start: 20201221, end: 20201221
  40. ALBUMIN HUMAN [Concomitant]
     Active Substance: ALBUMIN HUMAN
     Route: 042
     Dates: start: 20210104, end: 20210104
  41. ALBUMIN HUMAN [Concomitant]
     Active Substance: ALBUMIN HUMAN
     Route: 042
     Dates: start: 20210108, end: 20210108
  42. ALDACTONE [Concomitant]
     Active Substance: SPIRONOLACTONE
     Route: 048
     Dates: start: 20210109, end: 20210109
  43. HEPARIN SODIUM, PORCINE [Concomitant]
     Active Substance: HEPARIN SODIUM
     Route: 042
     Dates: start: 20201103, end: 20201103
  44. SODIUM CHLORIDE. [Concomitant]
     Active Substance: SODIUM CHLORIDE
     Route: 042
     Dates: start: 20201231, end: 20201231
  45. SODIUM CHLORIDE. [Concomitant]
     Active Substance: SODIUM CHLORIDE
     Route: 042
     Dates: start: 20210118, end: 20210118
  46. SODIUM CHLORIDE. [Concomitant]
     Active Substance: SODIUM CHLORIDE
     Dosage: 0.9% BOLUS (NS) 500 ML
     Route: 042
     Dates: start: 20210118, end: 20210118
  47. EMEND [Concomitant]
     Active Substance: APREPITANT
     Route: 042
     Dates: start: 20201123, end: 20201123
  48. TYLENOL [Concomitant]
     Active Substance: ACETAMINOPHEN
     Route: 048
     Dates: start: 20201123, end: 20201123
  49. TYLENOL [Concomitant]
     Active Substance: ACETAMINOPHEN
     Route: 048
     Dates: start: 20210104, end: 20210104
  50. HEPARIN [Concomitant]
     Active Substance: HEPARIN SODIUM
     Route: 042
     Dates: start: 20201123, end: 20201123
  51. HEPARIN [Concomitant]
     Active Substance: HEPARIN SODIUM
     Route: 042
     Dates: start: 20201207, end: 20201207
  52. HEPARIN [Concomitant]
     Active Substance: HEPARIN SODIUM
     Route: 042
     Dates: start: 20210118, end: 20210118
  53. BARACLUDE [Concomitant]
     Active Substance: ENTECAVIR
     Route: 048
     Dates: start: 20201130, end: 20201130
  54. ROMIPLOSTIM [Concomitant]
     Active Substance: ROMIPLOSTIM
     Route: 058
     Dates: start: 20201223, end: 20201223
  55. ALBUMIN HUMAN [Concomitant]
     Active Substance: ALBUMIN HUMAN
     Route: 042
     Dates: start: 20210111, end: 20210111
  56. CYCLOPHOSPHAMIDE. [Suspect]
     Active Substance: CYCLOPHOSPHAMIDE
     Indication: B-CELL LYMPHOMA
     Dosage: ON 02/NOV/2020, THE PATIENT RECEIVED MOST RECENT DOSE 1643 MG PRIOR TO AE.
     Route: 042
     Dates: start: 20201102
  57. OMNIPAQUE [Concomitant]
     Active Substance: IOHEXOL
     Route: 042
     Dates: start: 20210109, end: 20210109
  58. HEPARIN SODIUM, PORCINE [Concomitant]
     Active Substance: HEPARIN SODIUM
     Route: 042
     Dates: start: 20210113, end: 20210113
  59. SODIUM CHLORIDE. [Concomitant]
     Active Substance: SODIUM CHLORIDE
     Route: 042
     Dates: start: 20210104, end: 20210104
  60. SODIUM CHLORIDE. [Concomitant]
     Active Substance: SODIUM CHLORIDE
     Route: 042
     Dates: start: 20210116, end: 20210116
  61. PEGFILGRASTIM [Concomitant]
     Active Substance: PEGFILGRASTIM
     Route: 058
     Dates: start: 20201214, end: 20201214
  62. HEPARIN [Concomitant]
     Active Substance: HEPARIN SODIUM
     Route: 042
     Dates: start: 20201130, end: 20201130
  63. HEPARIN [Concomitant]
     Active Substance: HEPARIN SODIUM
     Route: 042
     Dates: start: 20201221, end: 20201221
  64. FUROSEMIDE. [Concomitant]
     Active Substance: FUROSEMIDE
     Route: 042
     Dates: start: 20201207, end: 20201207
  65. FUROSEMIDE. [Concomitant]
     Active Substance: FUROSEMIDE
     Route: 042
     Dates: start: 20210109, end: 20210109
  66. ROMIPLOSTIM [Concomitant]
     Active Substance: ROMIPLOSTIM
     Route: 058
     Dates: start: 20201228, end: 20201228
  67. ALLOPURINOL. [Concomitant]
     Active Substance: ALLOPURINOL
     Route: 048
     Dates: start: 20201214, end: 20201214
  68. MAGNESIUM SULFATE. [Concomitant]
     Active Substance: MAGNESIUM SULFATE
     Route: 042
     Dates: start: 20201222, end: 20201222
  69. LOPERAMIDE [Concomitant]
     Active Substance: LOPERAMIDE
     Route: 048
     Dates: start: 20201222, end: 20201222
  70. POLATUZUMAB VEDOTIN. [Suspect]
     Active Substance: POLATUZUMAB VEDOTIN
     Indication: B-CELL LYMPHOMA
     Dosage: ON 02/NOV/2020, THE PATIENT RECEIVED MOST RECENT DOSE 174 MG PRIOR TO AE.?ON 14/DEC/2020, PATIENT RE
     Route: 042
     Dates: start: 20201102
  71. DOXORUBICIN [Suspect]
     Active Substance: DOXORUBICIN
     Dosage: ON 14/DEC/2020, PATIENT RECEIVED MOST RECENT DOSE OF 107 MG PRIOR TO SAE ONSET.
     Route: 042
     Dates: start: 20201123
  72. ALOXI [Concomitant]
     Active Substance: PALONOSETRON HYDROCHLORIDE
     Route: 042
     Dates: start: 20201102, end: 20201102
  73. BENADRYL [Concomitant]
     Active Substance: DIPHENHYDRAMINE HYDROCHLORIDE
     Route: 048
     Dates: start: 20201103, end: 20201103
  74. TYLENOL [Concomitant]
     Active Substance: ACETAMINOPHEN
     Route: 048
     Dates: start: 20210118, end: 20210118
  75. HEPARIN [Concomitant]
     Active Substance: HEPARIN SODIUM
     Route: 042
     Dates: start: 20201218, end: 20201218
  76. EMEND [Concomitant]
     Active Substance: APREPITANT
     Route: 042
     Dates: start: 20201123, end: 20201123
  77. MOTRIN [Concomitant]
     Active Substance: IBUPROFEN
     Route: 048
     Dates: start: 20201130, end: 20201130
  78. ROMIPLOSTIM [Concomitant]
     Active Substance: ROMIPLOSTIM
     Route: 058
     Dates: start: 20201214, end: 20201214
  79. POTASSIUM CHLORIDE. [Concomitant]
     Active Substance: POTASSIUM CHLORIDE
     Dosage: 20 OTHER
     Route: 048
     Dates: start: 20201226, end: 20201226
  80. POTASSIUM CHLORIDE. [Concomitant]
     Active Substance: POTASSIUM CHLORIDE
     Dosage: 20 OTHER
     Route: 048
     Dates: start: 20210110, end: 20210110
  81. POTASSIUM CHLORIDE. [Concomitant]
     Active Substance: POTASSIUM CHLORIDE
     Dosage: 40 OTHER
     Route: 048
     Dates: start: 20210112, end: 20210112
  82. POTASSIUM;SODIUM PHOSPHATE [Concomitant]
     Dosage: 1 OTHER
     Route: 048
     Dates: start: 20201228, end: 20201228
  83. LOPERAMIDE [Concomitant]
     Active Substance: LOPERAMIDE
     Route: 048
     Dates: start: 20210118, end: 20210118
  84. PREDNISONE. [Suspect]
     Active Substance: PREDNISONE
     Indication: B-CELL LYMPHOMA
     Dosage: ON 02/NOV/2020, THE PATIENT RECEIVED MOST RECENT DOSE 100 MG PRIOR TO AE.
     Route: 048
     Dates: start: 20201103
  85. LIPITOR [Concomitant]
     Active Substance: ATORVASTATIN CALCIUM
     Route: 048
     Dates: start: 20201020
  86. MIDAZOLAM. [Concomitant]
     Active Substance: MIDAZOLAM
     Route: 065
     Dates: start: 20201028, end: 20201028
  87. HEPARIN SODIUM, PORCINE [Concomitant]
     Active Substance: HEPARIN SODIUM
     Dosage: 500 U
     Route: 042
     Dates: start: 20210116, end: 20210116
  88. SODIUM CHLORIDE. [Concomitant]
     Active Substance: SODIUM CHLORIDE
     Route: 042
     Dates: start: 20201214, end: 20201214
  89. SODIUM CHLORIDE. [Concomitant]
     Active Substance: SODIUM CHLORIDE
     Route: 042
     Dates: start: 20201222, end: 20201222
  90. EMEND [Concomitant]
     Active Substance: APREPITANT
     Route: 042
     Dates: start: 20201214, end: 20201214
  91. BENADRYL [Concomitant]
     Active Substance: DIPHENHYDRAMINE HYDROCHLORIDE
     Route: 048
     Dates: start: 20201102, end: 20201102
  92. BENADRYL [Concomitant]
     Active Substance: DIPHENHYDRAMINE HYDROCHLORIDE
     Route: 048
     Dates: start: 20201214, end: 20201214
  93. TYLENOL [Concomitant]
     Active Substance: ACETAMINOPHEN
     Route: 042
     Dates: start: 20201103, end: 20201103
  94. TYLENOL [Concomitant]
     Active Substance: ACETAMINOPHEN
     Route: 048
     Dates: start: 20201221, end: 20201221
  95. HEPARIN [Concomitant]
     Active Substance: HEPARIN SODIUM
     Route: 042
     Dates: start: 20201214, end: 20201214
  96. HEPARIN [Concomitant]
     Active Substance: HEPARIN SODIUM
     Route: 042
     Dates: start: 20201215, end: 20201215
  97. HEPARIN [Concomitant]
     Active Substance: HEPARIN SODIUM
     Route: 042
     Dates: start: 20201218, end: 20201218
  98. POTASSIUM CHLORIDE. [Concomitant]
     Active Substance: POTASSIUM CHLORIDE
     Dosage: 40 OTHER
     Route: 048
     Dates: start: 20201221, end: 20201221
  99. MAGNESIUM SULFATE. [Concomitant]
     Active Substance: MAGNESIUM SULFATE
     Route: 042
     Dates: start: 20210110, end: 20210110
  100. DOXORUBICIN [Suspect]
     Active Substance: DOXORUBICIN
     Indication: B-CELL LYMPHOMA
     Dosage: ON 02/NOV/2020, THE PATIENT RECEIVED MOST RECENT DOSE 109.6 MG PRIOR TO AE.
     Route: 042
     Dates: start: 20201102
  101. HEPARIN SODIUM, PORCINE [Concomitant]
     Active Substance: HEPARIN SODIUM
     Route: 042
     Dates: start: 20210104, end: 20210104
  102. SODIUM CHLORIDE. [Concomitant]
     Active Substance: SODIUM CHLORIDE
     Route: 042
     Dates: start: 20210108, end: 20210108
  103. TYLENOL [Concomitant]
     Active Substance: ACETAMINOPHEN
     Route: 042
     Dates: start: 20201102, end: 20201102
  104. HEPARIN [Concomitant]
     Active Substance: HEPARIN SODIUM
     Route: 042
     Dates: start: 20201216, end: 20201216
  105. POTASSIUM CHLORIDE. [Concomitant]
     Active Substance: POTASSIUM CHLORIDE
     Dosage: 40 OTHER
     Route: 048
     Dates: start: 20201227, end: 20201227
  106. LACTATED RINGERS SOLUTION [Concomitant]
     Active Substance: CALCIUM CHLORIDE\POTASSIUM CHLORIDE\SODIUM CHLORIDE\SODIUM LACTATE
     Route: 042
     Dates: start: 20201225, end: 20201225
  107. ALDACTONE [Concomitant]
     Active Substance: SPIRONOLACTONE
     Route: 048
     Dates: start: 20210112, end: 20210112
  108. ALTEPLASE. [Concomitant]
     Active Substance: ALTEPLASE
     Route: 065
     Dates: start: 20210116, end: 20210116
  109. LOPERAMIDE [Concomitant]
     Active Substance: LOPERAMIDE
     Route: 042
     Dates: start: 20201222, end: 20201228
  110. LEVOFLOXACIN. [Concomitant]
     Active Substance: LEVOFLOXACIN
     Route: 048
     Dates: start: 20201130, end: 20201221

REACTIONS (2)
  - Febrile neutropenia [Recovered/Resolved]
  - Neutrophil count decreased [Recovered/Resolved]

NARRATIVE: CASE EVENT DATE: 20201109
